FAERS Safety Report 5500565-2 (Version None)
Quarter: 2007Q4

REPORT INFORMATION
  Report Type: 
  Country: None (occurrence: None)
  Receive Date: 20071029
  Receipt Date: 20071018
  Transmission Date: 20080405
  Serious: Yes (Other)
  Sender: FDA-Public Use
  Company Number: US-WYE-H00733507

PATIENT
  Sex: Female
  Weight: 87.62 kg

DRUGS (4)
  1. PREMPRO [Suspect]
     Indication: MENOPAUSAL SYMPTOMS
     Dosage: .625/5MG DAILY
     Route: 048
     Dates: start: 20021001
  2. ATENOLOL [Concomitant]
  3. PAXIL CR [Concomitant]
  4. LOTREL [Concomitant]

REACTIONS (1)
  - NEOPLASM MALIGNANT [None]
